FAERS Safety Report 10312044 (Version 1)
Quarter: 2014Q3

REPORT INFORMATION
  Report Type: Spontaneous
  Country: CA (occurrence: None)
  Receive Date: 20140715
  Receipt Date: 20140715
  Transmission Date: 20150326
  Serious: Yes (Hospitalization)
  Sender: FDA-Public Use
  Company Number: AXC-2014-000425

PATIENT
  Age: 20 Year
  Sex: Male
  Weight: 51.2 kg

DRUGS (3)
  1. TUSSIONEX (BROMHEXINE) UNKNOWN [Concomitant]
  2. HYDROMORPHONE (HYDROMORPHONE) [Concomitant]
     Active Substance: HYDROMORPHONE
  3. SALOFALK [Suspect]
     Active Substance: MESALAMINE
     Indication: PRODUCT USED FOR UNKNOWN INDICATION
     Route: 048

REACTIONS (8)
  - Chest pain [None]
  - Cough [None]
  - Dyspnoea [None]
  - Pleurisy [None]
  - Chills [None]
  - Organising pneumonia [None]
  - Sputum discoloured [None]
  - Pyrexia [None]
